FAERS Safety Report 13147083 (Version 2)
Quarter: 2017Q1

REPORT INFORMATION
  Report Type: Spontaneous
  Country: US (occurrence: US)
  Receive Date: 20170125
  Receipt Date: 20170303
  Transmission Date: 20170428
  Serious: No
  Sender: FDA-Public Use
  Company Number: US-CELGENEUS-USA-2017015940

PATIENT
  Sex: Male
  Weight: 80.36 kg

DRUGS (2)
  1. POMALYST [Suspect]
     Active Substance: POMALIDOMIDE
     Dosage: 2 MILLIGRAM
     Route: 048
  2. POMALYST [Suspect]
     Active Substance: POMALIDOMIDE
     Indication: PLASMA CELL MYELOMA
     Dosage: 2 MILLIGRAM
     Route: 048
     Dates: start: 20161231

REACTIONS (5)
  - Rash pruritic [Recovered/Resolved]
  - Gingival bleeding [Unknown]
  - Platelet count decreased [Unknown]
  - Constipation [Unknown]
  - Pollakiuria [Unknown]
